FAERS Safety Report 6347124-X (Version None)
Quarter: 2009Q3

REPORT INFORMATION
  Report Type: 
  Country: None (occurrence: None)
  Receive Date: 20090910
  Receipt Date: 20090831
  Transmission Date: 20100115
  Serious: Yes (Other)
  Sender: FDA-Public Use
  Company Number: US-PFIZER INC-2009262953

PATIENT
  Age: 61 Year
  Sex: Female

DRUGS (6)
  1. ZITHROMAX [Suspect]
     Indication: BRONCHITIS
     Dosage: UNIT DOSE: 2;
     Dates: start: 20090501, end: 20090101
  2. BENZYLPENICILLIN AND BENZYLPENICILLIN POTASSIUM AND BENZYLPENICILLIN S [Suspect]
     Dosage: UNK
  3. JANUVIA [Concomitant]
  4. GLYBURIDE [Concomitant]
  5. DIOVAN [Concomitant]
     Dosage: UNK
  6. LIPITOR [Concomitant]
     Dosage: UNK

REACTIONS (5)
  - AGEUSIA [None]
  - ANOSMIA [None]
  - DRUG HYPERSENSITIVITY [None]
  - EMOTIONAL DISORDER [None]
  - NERVOUSNESS [None]
